FAERS Safety Report 25908763 (Version 1)
Quarter: 2025Q4

REPORT INFORMATION
  Report Type: Spontaneous
  Country: EU (occurrence: EU)
  Receive Date: 20251011
  Receipt Date: 20251011
  Transmission Date: 20260118
  Serious: Yes (Other)
  Sender: AMGEN
  Company Number: EU-AMGEN-ROUSP2025201912

PATIENT

DRUGS (3)
  1. CARFILZOMIB [Suspect]
     Active Substance: CARFILZOMIB
     Indication: Plasma cell myeloma refractory
     Dosage: UNK
     Route: 065
  2. TOLODODEKIN ALFA [Concomitant]
     Active Substance: TOLODODEKIN ALFA
     Indication: Plasma cell myeloma refractory
     Dosage: UNK
     Route: 065
  3. DEXAMETHASONE [Concomitant]
     Active Substance: DEXAMETHASONE
     Indication: Plasma cell myeloma refractory
     Dosage: UNK

REACTIONS (12)
  - Plasma cell myeloma refractory [Unknown]
  - Angina pectoris [Unknown]
  - Neuropathy peripheral [Unknown]
  - Thrombocytopenia [Unknown]
  - Hepatitis B reactivation [Unknown]
  - Hypokalaemia [Unknown]
  - Neutropenia [Unknown]
  - Anaemia [Unknown]
  - Hypertension [Unknown]
  - Respiratory tract infection [Unknown]
  - Diarrhoea [Unknown]
  - Therapy partial responder [Unknown]
